FAERS Safety Report 9461827 (Version 1)
Quarter: 2013Q3

REPORT INFORMATION
  Report Type: Spontaneous
  Country: US (occurrence: None)
  Receive Date: 20130815
  Receipt Date: 20130815
  Transmission Date: 20140515
  Serious: Yes (Disabling)
  Sender: FDA-Public Use
  Company Number: None

PATIENT
  Age: 56 Year
  Sex: Female
  Weight: 72.58 kg

DRUGS (1)
  1. RECLAST [Suspect]
     Indication: OSTEOPOROSIS
     Dates: start: 20130809, end: 20130809

REACTIONS (12)
  - Nausea [None]
  - Dizziness [None]
  - Pallor [None]
  - Musculoskeletal pain [None]
  - Pain in extremity [None]
  - Abasia [None]
  - Pain [None]
  - Immobile [None]
  - Aphagia [None]
  - Pain in extremity [None]
  - Local swelling [None]
  - Vibratory sense increased [None]
